FAERS Safety Report 9976060 (Version 1)
Quarter: 2014Q1

REPORT INFORMATION
  Report Type: Spontaneous
  Country: IN (occurrence: IN)
  Receive Date: 20140306
  Receipt Date: 20140306
  Transmission Date: 20141002
  Serious: Yes (Other)
  Sender: FDA-Public Use
  Company Number: ALCN2014IN001451

PATIENT
  Age: 30 Year
  Sex: Female

DRUGS (2)
  1. TIMOLOL [Suspect]
     Indication: ANGLE CLOSURE GLAUCOMA
     Dosage: UNK UNK, TID
     Route: 047
  2. ACETAZOLAMIDE [Suspect]
     Indication: ANGLE CLOSURE GLAUCOMA
     Dosage: 500 MG, TID
     Route: 048

REACTIONS (3)
  - Intraocular pressure increased [Recovered/Resolved]
  - Flat anterior chamber of eye [Recovered/Resolved]
  - Corneal oedema [Recovered/Resolved]
